FAERS Safety Report 10206520 (Version 2)
Quarter: 2015Q1

REPORT INFORMATION
  Report Type: Spontaneous
  Country: US (occurrence: US)
  Receive Date: 20140530
  Receipt Date: 20150210
  Transmission Date: 20150720
  Serious: No
  Sender: FDA-Public Use
  Company Number: US-GLAXOSMITHKLINE-A1022705A

PATIENT

DRUGS (3)
  1. FLOLAN [Suspect]
     Active Substance: EPOPROSTENOL SODIUM
     Indication: PULMONARY ARTERIAL HYPERTENSION
     Dosage: CONCENTRATION 60,000 NG/ML53 NG/KG/MIN, CONCENTRATION 75,000 NG/ML, PUMP RATE 76 ML/DAY, VIAL S[...]
     Route: 042
     Dates: start: 20061206
  2. COUMADIN [Concomitant]
     Active Substance: WARFARIN SODIUM
  3. FLOLAN [Suspect]
     Active Substance: EPOPROSTENOL SODIUM
     Dates: start: 20061206

REACTIONS (2)
  - Device occlusion [Unknown]
  - Sinus disorder [Unknown]
